FAERS Safety Report 6386840-0 (Version None)
Quarter: 2009Q4

REPORT INFORMATION
  Report Type: 
  Country: None (occurrence: None)
  Receive Date: 20091002
  Receipt Date: 20090921
  Transmission Date: 20100525
  Serious: Yes (Hospitalization)
  Sender: FDA-Public Use
  Company Number: NL-GENENTECH-290976

PATIENT
  Sex: Female

DRUGS (4)
  1. BEVACIZUMAB [Suspect]
     Indication: BREAST CANCER METASTATIC
     Dosage: 830 MG, UNK
     Route: 042
     Dates: start: 20090713, end: 20090817
  2. PACLITAXEL [Suspect]
     Indication: BREAST CANCER METASTATIC
     Dosage: 175 MG, UNK
     Route: 042
     Dates: start: 20090713, end: 20090817
  3. LACTULOSE [Concomitant]
     Indication: DRUG USE FOR UNKNOWN INDICATION
  4. LOSAZID [Concomitant]
     Indication: DRUG USE FOR UNKNOWN INDICATION

REACTIONS (2)
  - PYREXIA [None]
  - WHITE BLOOD CELL COUNT DECREASED [None]
